FAERS Safety Report 7992603-2 (Version None)
Quarter: 2011Q4

REPORT INFORMATION
  Report Type: 
  Country: None (occurrence: None)
  Receive Date: 20111219
  Receipt Date: 20111214
  Transmission Date: 20120403
  Serious: Yes (Other)
  Sender: FDA-Public Use
  Company Number: US-PFIZER INC-2011260110

PATIENT
  Sex: Male
  Weight: 68.027 kg

DRUGS (1)
  1. GEODON [Suspect]
     Indication: BIPOLAR I DISORDER
     Dosage: 80 MG, 2X/DAY
     Route: 048
     Dates: start: 20081201, end: 20090801

REACTIONS (1)
  - NO ADVERSE EVENT [None]
